FAERS Safety Report 23081494 (Version 1)
Quarter: 2023Q4

REPORT INFORMATION
  Report Type: Spontaneous
  Country: CA (occurrence: None)
  Receive Date: 20231019
  Receipt Date: 20231019
  Transmission Date: 20240109
  Serious: Yes (Other)
  Sender: FDA-Public Use
  Company Number: 2023A233414

PATIENT
  Age: 77 Year
  Sex: Female

DRUGS (14)
  1. ROSUVASTATIN CALCIUM [Suspect]
     Active Substance: ROSUVASTATIN CALCIUM
     Indication: Product used for unknown indication
     Route: 048
  2. LEFLUNOMIDE [Suspect]
     Active Substance: LEFLUNOMIDE
     Indication: Product used for unknown indication
  3. HYDROCHLOROTHIAZIDE [Suspect]
     Active Substance: HYDROCHLOROTHIAZIDE
     Indication: Product used for unknown indication
  4. CALCIUM CHLORIDE [Suspect]
     Active Substance: CALCIUM CHLORIDE
     Indication: Product used for unknown indication
     Dosage: 1200.0 MILLIGRAM, 1 EVERY 1 DAYS
  5. ARAVA [Concomitant]
     Active Substance: LEFLUNOMIDE
  6. ENBREL [Concomitant]
     Active Substance: ETANERCEPT
     Dosage: 1.0 DOSAGE FORMS 1 EVERY 1WEEKS
     Route: 058
  7. ERGOCALCIFEROL [Concomitant]
     Active Substance: ERGOCALCIFEROL
     Dosage: 1 EVERY 1 DAYS
     Route: 048
  8. HUMIRA [Concomitant]
     Active Substance: ADALIMUMAB
     Route: 058
  9. HYDROXYCHLOROQUINE [Concomitant]
     Active Substance: HYDROXYCHLOROQUINE
  10. METHOTREXATE [Concomitant]
     Active Substance: METHOTREXATE
     Route: 048
  11. NAPROXEN [Concomitant]
     Active Substance: NAPROXEN
  12. PREDNISONE [Concomitant]
     Active Substance: PREDNISONE
     Route: 048
  13. PROLIA [Concomitant]
     Active Substance: DENOSUMAB
     Route: 058
  14. REMICADE [Concomitant]
     Active Substance: INFLIXIMAB
     Route: 041

REACTIONS (25)
  - Adenomatous polyposis coli [Unknown]
  - Arthritis [Unknown]
  - COVID-19 [Unknown]
  - Cardiac disorder [Unknown]
  - Deformity [Unknown]
  - Depression [Unknown]
  - Diverticulum [Unknown]
  - Dyslipidaemia [Unknown]
  - Enthesophyte [Unknown]
  - Fibroadenoma of breast [Unknown]
  - Fibrocystic breast disease [Unknown]
  - Haemorrhoids [Unknown]
  - Hypertension [Unknown]
  - Intraductal papilloma of breast [Unknown]
  - Joint ankylosis [Unknown]
  - Joint swelling [Unknown]
  - Mediastinal mass [Unknown]
  - Osteoporosis [Unknown]
  - Pathological fracture [Unknown]
  - Psoriatic arthropathy [Unknown]
  - Rheumatoid arthritis [Unknown]
  - Seronegative arthritis [Unknown]
  - Synovitis [Unknown]
  - Tendon rupture [Unknown]
  - Treatment failure [Unknown]
